FAERS Safety Report 4287573-7 (Version None)
Quarter: 2004Q1

REPORT INFORMATION
  Report Type: 
  Country: None (occurrence: None)
  Receive Date: 20040209
  Receipt Date: 20030728
  Transmission Date: 20041129
  Serious: No
  Sender: FDA-Public Use
  Company Number: US-GLAXOSMITHKLINE-A0418622A

PATIENT
  Sex: Male

DRUGS (1)
  1. PAXIL CR [Suspect]
     Dates: end: 20030301

REACTIONS (5)
  - ABNORMAL DREAMS [None]
  - CONFUSIONAL STATE [None]
  - PANIC REACTION [None]
  - PARAESTHESIA [None]
  - PHOBIA [None]
